FAERS Safety Report 6121847-X (Version None)
Quarter: 2009Q1

REPORT INFORMATION
  Report Type: 
  Country: None (occurrence: None)
  Receive Date: 20090317
  Receipt Date: 20090303
  Transmission Date: 20090719
  Serious: Yes (Hospitalization)
  Sender: FDA-Public Use
  Company Number: KR-GENENTECH-278273

PATIENT
  Sex: Male

DRUGS (16)
  1. BLINDED BEVACIZUMAB [Suspect]
     Indication: DIFFUSE LARGE B-CELL LYMPHOMA
     Dosage: UNK MG, Q21D
     Route: 042
     Dates: start: 20081002, end: 20090201
  2. CYCLOPHOSPHAMIDE [Suspect]
     Indication: DIFFUSE LARGE B-CELL LYMPHOMA
     Dosage: UNK MG, Q21D
     Route: 042
     Dates: start: 20081002, end: 20090201
  3. DOXORUBICIN HCL [Suspect]
     Indication: DIFFUSE LARGE B-CELL LYMPHOMA
     Dosage: UNK MG, Q21D
     Route: 042
     Dates: start: 20081002, end: 20090201
  4. BLINDED PLACEBO [Suspect]
     Indication: DIFFUSE LARGE B-CELL LYMPHOMA
     Dosage: UNK MG, Q21D
     Route: 042
     Dates: start: 20081002, end: 20090201
  5. PREDNISONE TAB [Suspect]
     Indication: DIFFUSE LARGE B-CELL LYMPHOMA
     Dosage: UNK MG, Q21D
     Route: 042
     Dates: start: 20081002, end: 20090201
  6. BLINDED RITUXIMAB [Suspect]
     Indication: DIFFUSE LARGE B-CELL LYMPHOMA
     Dosage: UNK MG, Q21D
     Route: 042
     Dates: start: 20081002, end: 20090201
  7. VINCRISTINE [Suspect]
     Indication: DIFFUSE LARGE B-CELL LYMPHOMA
     Dosage: UNK MG, Q21D
     Route: 042
     Dates: start: 20081002, end: 20090201
  8. RITUXAN [Suspect]
     Indication: DIFFUSE LARGE B-CELL LYMPHOMA
     Dosage: 594 MG, Q21D
     Route: 042
     Dates: start: 20081003, end: 20090201
  9. DOXORUBICIN HCL [Suspect]
     Indication: DIFFUSE LARGE B-CELL LYMPHOMA
     Dosage: 93 MG, Q21D
     Route: 042
     Dates: start: 20081003, end: 20090201
  10. CYCLOPHOSPHAMIDE [Suspect]
     Indication: DIFFUSE LARGE B-CELL LYMPHOMA
     Dosage: 1388 MG, Q21D
     Route: 042
     Dates: start: 20081002, end: 20090128
  11. VINCRISTINE [Suspect]
     Indication: DIFFUSE LARGE B-CELL LYMPHOMA
     Dosage: 2 MG, Q21D
     Route: 042
     Dates: start: 20081002, end: 20090201
  12. PREDNISOLONE [Suspect]
     Indication: DIFFUSE LARGE B-CELL LYMPHOMA
     Dosage: 60 MG, Q21D
     Route: 048
     Dates: start: 20081002, end: 20090201
  13. ATENOLOL [Concomitant]
     Indication: DRUG USE FOR UNKNOWN INDICATION
     Dosage: UNK
     Dates: start: 20081031
  14. MOSAPRIDE CITRATE [Concomitant]
     Indication: DRUG USE FOR UNKNOWN INDICATION
     Dosage: UNK
     Dates: start: 20081031
  15. MAGNESIUM OXIDE [Concomitant]
     Indication: DRUG USE FOR UNKNOWN INDICATION
     Dosage: UNK
     Dates: start: 20090220
  16. GLIMEPIRIDE [Concomitant]
     Indication: DRUG USE FOR UNKNOWN INDICATION
     Dosage: UNK
     Dates: start: 20090219

REACTIONS (3)
  - ALANINE AMINOTRANSFERASE INCREASED [None]
  - ANAL ABSCESS [None]
  - ASPARTATE AMINOTRANSFERASE INCREASED [None]
